FAERS Safety Report 13192213 (Version 1)
Quarter: 2017Q1

REPORT INFORMATION
  Report Type: Spontaneous
  Country: US (occurrence: US)
  Receive Date: 20170207
  Receipt Date: 20170207
  Transmission Date: 20170428
  Serious: No
  Sender: FDA-Public Use
  Company Number: None

PATIENT

DRUGS (2)
  1. MYCOPHENOLATE MOFETIL WEST-WARD PHARMACEUTICAL CORPORATIOON [Suspect]
     Active Substance: MYCOPHENOLATE MOFETIL
     Dosage: TYPE - BOTTLE
     Route: 048
  2. QUETIAPINE FUMARATE ROXANE LABORATORIES, INC. [Suspect]
     Active Substance: QUETIAPINE FUMARATE
     Dosage: TYPE - BOTTLE
     Route: 048

REACTIONS (3)
  - Product packaging confusion [None]
  - Drug dispensing error [None]
  - Product label confusion [None]
